FAERS Safety Report 4449759-8 (Version None)
Quarter: 2004Q3

REPORT INFORMATION
  Report Type: 
  Country: None (occurrence: None)
  Receive Date: 20040913
  Receipt Date: 20040831
  Transmission Date: 20050211
  Serious: Yes (Other)
  Sender: FDA-Public Use
  Company Number: HQWYE752701SEP04

PATIENT
  Age: 35 Year
  Sex: Female

DRUGS (12)
  1. EFFEXOR [Suspect]
     Indication: DEPRESSION
     Dosage: SEE IMAGE/OVER 4-5 DAYS
  2. AVELOX [Suspect]
     Indication: UPPER RESPIRATORY TRACT INFECTION
     Dosage: 400 MG , INTRAVENOUS
     Route: 042
  3. BUPROPION (AMFEBUTAMONE, ) [Suspect]
     Indication: DEPRESSION
     Dosage: SEE IMAGE/OVER 48 HOURS
  4. CARVEDILOL [Suspect]
     Dosage: 3.125 MG 2X PER 1 DAY
  5. VANCOMYCIN [Concomitant]
  6. ASPIRIN [Concomitant]
  7. FUROSEMIDE [Concomitant]
  8. SPIRONOLACTONE [Concomitant]
  9. MILRINONE (MILRINONE) [Concomitant]
  10. CLONAZEPAM [Concomitant]
  11. CALCIUM (CALCIUM) [Concomitant]
  12. MULTIVITAMINS (ASCORBIC ACID/ERGOCALCIFEROL/FOLIC ACID/NICOTINAMIDE/PA [Concomitant]

REACTIONS (4)
  - DRUG INTERACTION [None]
  - DRUG LEVEL INCREASED [None]
  - ELECTROCARDIOGRAM QRS COMPLEX PROLONGED [None]
  - MEDICAL DEVICE COMPLICATION [None]
